FAERS Safety Report 24133882 (Version 1)
Quarter: 2024Q3

REPORT INFORMATION
  Report Type: Spontaneous
  Country: FR (occurrence: FR)
  Receive Date: 20240724
  Receipt Date: 20240724
  Transmission Date: 20241017
  Serious: Yes (Other)
  Sender: AMERICAN REGENT
  Company Number: FR-AMERICAN REGENT INC-2024002800

PATIENT
  Age: 60 Year
  Sex: Male
  Weight: 72 kg

DRUGS (4)
  1. VENOFER [Suspect]
     Active Substance: IRON SUCROSE
     Indication: Iron deficiency anaemia
     Dosage: 300 MILLIGRAM, QD
     Route: 042
     Dates: start: 20240418, end: 20240418
  2. VENOFER [Suspect]
     Active Substance: IRON SUCROSE
     Dosage: 300 MILLIGRAM, QD
     Route: 042
     Dates: start: 20240419, end: 20240419
  3. VENOFER [Suspect]
     Active Substance: IRON SUCROSE
     Dosage: 300 MILLIGRAM, QD
     Route: 042
     Dates: start: 20240420, end: 20240420
  4. VENOFER [Suspect]
     Active Substance: IRON SUCROSE
     Dosage: LAST ADMINISTRATION PRIOR TO ADVERSE EVENT: 21-APR-2024. (300 MG,1 IN 1 D)
     Route: 042
     Dates: start: 20240421, end: 20240421

REACTIONS (1)
  - Superficial vein thrombosis [Recovered/Resolved]

NARRATIVE: CASE EVENT DATE: 20240423
